FAERS Safety Report 11133445 (Version 1)
Quarter: 2015Q2

REPORT INFORMATION
  Report Type: Spontaneous
  Country: US (occurrence: US)
  Receive Date: 20150522
  Receipt Date: 20150522
  Transmission Date: 20150821
  Serious: No
  Sender: FDA-Public Use
  Company Number: US-009507513-1505USA004502

PATIENT
  Age: 51 Year
  Sex: Male
  Weight: 55 kg

DRUGS (10)
  1. ALBUTEROL. [Concomitant]
     Active Substance: ALBUTEROL
     Indication: COCCIDIOIDOMYCOSIS
  2. TESSALON [Concomitant]
     Active Substance: BENZONATATE
     Indication: COUGH
     Dosage: TWO 100MG CAPSULES, BY MOUTH EVERY FOUR TO SIX HOURS,
     Route: 048
     Dates: start: 201404
  3. DUONEB [Concomitant]
     Active Substance: ALBUTEROL SULFATE\IPRATROPIUM BROMIDE
     Indication: CHRONIC OBSTRUCTIVE PULMONARY DISEASE
     Dosage: THREE TIMES A DAY BY MOUTH, NEBULIZER
     Route: 048
     Dates: start: 201404
  4. FLUCONAZOLE. [Concomitant]
     Active Substance: FLUCONAZOLE
     Indication: COCCIDIOIDOMYCOSIS
  5. TRAMADOL HYDROCHLORIDE. [Concomitant]
     Active Substance: TRAMADOL HYDROCHLORIDE
     Indication: PAIN
     Dosage: 50 MG REGULAR TABLET, BY MOUTH, EVERY FOUR TO SIX HOURS WHEN NEEDED
     Route: 048
     Dates: start: 201404
  6. REMERON [Suspect]
     Active Substance: MIRTAZAPINE
     Indication: SLEEP DISORDER
     Dosage: 1 TABLET BY MOUTH, AT NIGHT
     Route: 048
     Dates: start: 201404
  7. FLUCONAZOLE. [Concomitant]
     Active Substance: FLUCONAZOLE
     Indication: COCCIDIOIDOMYCOSIS
     Dosage: TWO 100 MG TABLETS, BY MOUTH, DAILY,
     Route: 048
     Dates: start: 201404
  8. ALBUTEROL. [Concomitant]
     Active Substance: ALBUTEROL
     Indication: CHRONIC OBSTRUCTIVE PULMONARY DISEASE
     Dosage: DOES NOT PROVIDE HOW MANY PUFFS BY MOUTH
     Route: 055
     Dates: start: 201404
  9. TRAMADOL HYDROCHLORIDE. [Concomitant]
     Active Substance: TRAMADOL HYDROCHLORIDE
     Indication: PAIN
     Dosage: 100 MG EXTENDED RELEASE TABLET DAILY BY MOUTH
     Route: 048
     Dates: start: 201404
  10. VITAMINS (UNSPECIFIED) [Concomitant]
     Active Substance: VITAMINS

REACTIONS (1)
  - Weight increased [Unknown]
